FAERS Safety Report 21215207 (Version 1)
Quarter: 2022Q3

REPORT INFORMATION
  Report Type: Spontaneous
  Country: US (occurrence: None)
  Receive Date: 20220815
  Receipt Date: 20220815
  Transmission Date: 20221027
  Serious: Yes (Death)
  Sender: FDA-Public Use
  Company Number: None

PATIENT
  Sex: Male

DRUGS (3)
  1. CAPECITABINE [Suspect]
     Active Substance: CAPECITABINE
     Indication: Oesophageal carcinoma
     Dosage: FREQUENCY : AS DIRECTED;?TAKE 4 TABLETS BY MOUTH IN THE MORNING AND 4 TABLETS BY MOUTH BEFORE BEDTIM
     Route: 048
     Dates: start: 20220713
  2. CAPECITABINE [Suspect]
     Active Substance: CAPECITABINE
     Dosage: FREQUENCY : AS DIRECTED;?
     Route: 048
  3. ALTACE [Concomitant]
     Active Substance: RAMIPRIL

REACTIONS (1)
  - Death [None]
